FAERS Safety Report 17185457 (Version 1)
Quarter: 2019Q4

REPORT INFORMATION
  Report Type: Spontaneous
  Country: US (occurrence: US)
  Receive Date: 20191220
  Receipt Date: 20191220
  Transmission Date: 20200122
  Serious: No
  Sender: FDA-Public Use
  Company Number: US-MALLINCKRODT-T201805311

PATIENT
  Age: 42 Year
  Sex: Female

DRUGS (7)
  1. FENTANYL TRANSDERMAL SYSTEM [Suspect]
     Active Substance: FENTANYL
     Indication: PAIN
     Dosage: UNK
     Route: 062
     Dates: start: 20180315, end: 2018
  2. FENTANYL TRANSDERMAL SYSTEM [Suspect]
     Active Substance: FENTANYL
     Dosage: EVERY 48 HOURS
     Route: 062
  3. OXYCODONE [Concomitant]
     Active Substance: OXYCODONE
     Indication: NEURALGIA
     Dosage: UNK
     Route: 065
  4. FENTANYL TRANSDERMAL SYSTEM [Suspect]
     Active Substance: FENTANYL
     Indication: PAIN
     Dosage: EVERY 72 HOURS
     Route: 062
     Dates: start: 20180814, end: 2018
  5. CENTAMOL [Concomitant]
     Indication: PAIN
     Dosage: UNK
     Route: 062
  6. GABAPENTIN. [Suspect]
     Active Substance: GABAPENTIN
     Indication: PRODUCT USED FOR UNKNOWN INDICATION
     Dosage: UNK
     Route: 065
  7. CENTAMOL [Concomitant]
     Indication: PAIN
     Dosage: UNK
     Route: 042

REACTIONS (14)
  - Feeling abnormal [Unknown]
  - Product adhesion issue [Unknown]
  - Petechiae [Unknown]
  - Eating disorder [Recovering/Resolving]
  - Nausea [Recovering/Resolving]
  - Crying [Unknown]
  - Hyperhidrosis [Recovering/Resolving]
  - Tremor [Recovering/Resolving]
  - Drug ineffective [Unknown]
  - Hunger [Unknown]
  - Insomnia [Unknown]
  - Burning sensation [Recovering/Resolving]
  - Memory impairment [Unknown]
  - Inflammation [Recovering/Resolving]

NARRATIVE: CASE EVENT DATE: 2018
